APPROVED DRUG PRODUCT: CLINDAMYCIN PHOSPHATE
Active Ingredient: CLINDAMYCIN PHOSPHATE
Strength: EQ 150MG BASE/ML
Dosage Form/Route: INJECTABLE;INJECTION
Application: A065347 | Product #001
Applicant: FRESENIUS KABI USA LLC
Approved: May 9, 2007 | RLD: No | RS: No | Type: DISCN